FAERS Safety Report 6196861-9 (Version None)
Quarter: 2009Q2

REPORT INFORMATION
  Report Type: 
  Country: None (occurrence: None)
  Receive Date: 20090518
  Receipt Date: 20090518
  Transmission Date: 20091009
  Serious: Yes (Hospitalization, Disabling, Other)
  Sender: FDA-Public Use
  Company Number: None

PATIENT
  Age: 45 Year
  Sex: Male
  Weight: 128.7 kg

DRUGS (2)
  1. ISOVUE-370 [Suspect]
     Indication: SCAN BRAIN
     Dosage: UNKNOWN
     Dates: start: 20090514, end: 20090514
  2. ISOVUE-370 [Suspect]
     Indication: COMPUTERISED TOMOGRAM
     Dates: start: 20090514, end: 20090515

REACTIONS (1)
  - ACUTE RESPIRATORY DISTRESS SYNDROME [None]
